FAERS Safety Report 17576236 (Version 2)
Quarter: 2022Q3

REPORT INFORMATION
  Report Type: Report from Study
  Country: DE (occurrence: DE)
  Receive Date: 20200324
  Receipt Date: 20220825
  Transmission Date: 20221027
  Serious: Yes (Other)
  Sender: FDA-Public Use
  Company Number: DE-002147023-NVSC2020DE074261

PATIENT

DRUGS (3)
  1. RUXOLITINIB [Suspect]
     Active Substance: RUXOLITINIB
     Indication: Primary myelofibrosis
     Dosage: 20 MG, PER DAY
     Route: 048
     Dates: start: 20150716
  2. BETAHISTINE [Concomitant]
     Active Substance: BETAHISTINE
     Indication: Hypertension
     Dosage: 2 OT, QD
     Route: 065
     Dates: start: 20150325
  3. METFORMIN [Concomitant]
     Active Substance: METFORMIN HYDROCHLORIDE
     Indication: Diabetes mellitus
     Dosage: 1 OT, QD
     Route: 065

REACTIONS (2)
  - Iron overload [Unknown]
  - Blood uric acid abnormal [Recovered/Resolved]

NARRATIVE: CASE EVENT DATE: 20181123
